FAERS Safety Report 23225526 (Version 2)
Quarter: 2023Q4

REPORT INFORMATION
  Report Type: Spontaneous
  Country: CZ (occurrence: CZ)
  Receive Date: 20231124
  Receipt Date: 20231201
  Transmission Date: 20240110
  Serious: Yes (Life-Threatening, Hospitalization, Disabling, Other)
  Sender: FDA-Public Use
  Company Number: None

PATIENT
  Age: 23 Year
  Sex: Female
  Weight: 75 kg

DRUGS (5)
  1. THYMOGLOBULINE [Suspect]
     Active Substance: LAPINE T-LYMPHOCYTE IMMUNE GLOBULIN
     Indication: Prophylaxis against graft versus host disease
     Dosage: 225 MG (6MG/KG), BID
     Route: 042
     Dates: start: 20230925, end: 20230926
  2. FLUDARABINE PHOSPHATE [Concomitant]
     Active Substance: FLUDARABINE PHOSPHATE
     Dosage: FLUDARABINE 40 MG/M? BODY SURFACE (7 TO 4 DAYS BEFORE THE PROCEDURE)
     Dates: start: 20230920, end: 20230924
  3. BUSULFAN [Concomitant]
     Active Substance: BUSULFAN
     Dosage: 3.2 MG PER CORRECTED WEIGHT IN ONE DAILY DOSE (7 TO 4 DAYS BEFORE THE PROCEDURE)
     Dates: start: 20230920, end: 20230924
  4. TACROLIMUS [Concomitant]
     Active Substance: TACROLIMUS
     Indication: Prophylaxis against graft versus host disease
  5. MYCOPHENOLATE MOFETIL [Concomitant]
     Active Substance: MYCOPHENOLATE MOFETIL
     Indication: Prophylaxis against graft versus host disease

REACTIONS (6)
  - Staphylococcal sepsis [Unknown]
  - Acute graft versus host disease [Not Recovered/Not Resolved]
  - Drug ineffective [Unknown]
  - Rash [Recovering/Resolving]
  - Weight increased [Unknown]
  - Pyrexia [Unknown]

NARRATIVE: CASE EVENT DATE: 20231009
